FAERS Safety Report 21105158 (Version 2)
Quarter: 2022Q3

REPORT INFORMATION
  Report Type: Spontaneous
  Country: CN (occurrence: CN)
  Receive Date: 20220720
  Receipt Date: 20220803
  Transmission Date: 20221026
  Serious: Yes (Other)
  Sender: FDA-Public Use
  Company Number: CN-NOVARTISPH-NVSC2022CN163687

PATIENT
  Age: 55 Year
  Sex: Female

DRUGS (3)
  1. TEGRETOL [Suspect]
     Active Substance: CARBAMAZEPINE
     Indication: Epilepsy
     Dosage: UNK
     Route: 065
  2. TEGRETOL [Suspect]
     Active Substance: CARBAMAZEPINE
     Dosage: 6 DOSAGE FORM, QD (3 TIMES A DAY, 2 TABLETS AT A TIME)
     Route: 048
  3. TRILEPTAL [Suspect]
     Active Substance: OXCARBAZEPINE
     Indication: Epilepsy
     Dosage: 5.5 DOSAGE FORM, QD
     Route: 048
     Dates: start: 202205

REACTIONS (3)
  - Epilepsy [Recovering/Resolving]
  - Fall [Recovering/Resolving]
  - Incorrect dose administered [Unknown]
